FAERS Safety Report 4442390-X (Version None)
Quarter: 2004Q3

REPORT INFORMATION
  Report Type: 
  Country: None (occurrence: None)
  Receive Date: 20040903
  Receipt Date: 20040625
  Transmission Date: 20050211
  Serious: Yes (Other)
  Sender: FDA-Public Use
  Company Number: 2004UW13256

PATIENT
  Age: 69 Year
  Sex: Female
  Weight: 95.2554 kg

DRUGS (6)
  1. CRESTOR [Suspect]
     Indication: BLOOD CHOLESTEROL INCREASED
     Dosage: 10MG PO
     Route: 048
     Dates: start: 20040401
  2. LOTENSIN [Concomitant]
  3. AMARYL [Concomitant]
  4. WATER PILL [Concomitant]
  5. ACIPHEX [Concomitant]
  6. XANAX [Concomitant]

REACTIONS (4)
  - ABDOMINAL DISTENSION [None]
  - ABDOMINAL PAIN [None]
  - FLATULENCE [None]
  - FREQUENT BOWEL MOVEMENTS [None]
